FAERS Safety Report 8107460-3 (Version None)
Quarter: 2012Q1

REPORT INFORMATION
  Report Type: 
  Country: None (occurrence: None)
  Receive Date: 20120202
  Receipt Date: 20120123
  Transmission Date: 20120608
  Serious: Yes (Hospitalization)
  Sender: FDA-Public Use
  Company Number: US-VERTEX PHARMACEUTICALS INC.-AE-2012-001586

PATIENT
  Sex: Female

DRUGS (3)
  1. RIBAVIRIN [Concomitant]
     Indication: HEPATITIS C
     Dates: start: 20110912, end: 20111101
  2. INTERFERON [Concomitant]
     Indication: HEPATITIS C
     Dates: start: 20110912, end: 20111101
  3. INCIVEK [Suspect]
     Indication: HEPATITIS C
     Route: 048
     Dates: start: 20110912, end: 20111101

REACTIONS (3)
  - NEUROPATHY PERIPHERAL [None]
  - ANAEMIA [None]
  - HEPATIC CIRRHOSIS [None]
